FAERS Safety Report 6724238-3 (Version None)
Quarter: 2010Q2

REPORT INFORMATION
  Report Type: 
  Country: None (occurrence: None)
  Receive Date: 20100513
  Receipt Date: 20100504
  Transmission Date: 20101027
  Serious: Yes (Hospitalization)
  Sender: FDA-Public Use
  Company Number: US-ELI_LILLY_AND_COMPANY-US201005001746

PATIENT
  Age: 56 Year
  Sex: Male

DRUGS (7)
  1. BYETTA [Suspect]
     Dosage: 10 UG, 2/D
     Dates: start: 20070501, end: 20100301
  2. GLUCOPHAGE XR [Concomitant]
     Dosage: 2 MG, UNK
  3. LANTUS [Concomitant]
     Dosage: 65 U, DAILY (1/D)
  4. LOTREL [Concomitant]
  5. TRICOR [Concomitant]
  6. FISH OIL [Concomitant]
  7. ASPIRIN [Concomitant]

REACTIONS (1)
  - PANCREATITIS [None]
